FAERS Safety Report 8431366-3 (Version None)
Quarter: 2012Q2

REPORT INFORMATION
  Report Type: 
  Country: None (occurrence: None)
  Receive Date: 20120613
  Receipt Date: 20120522
  Transmission Date: 20120825
  Serious: No
  Sender: FDA-Public Use
  Company Number: US-ASTRAZENECA-2011SE41556

PATIENT
  Age: 53 Year
  Sex: Male
  Weight: 104.3 kg

DRUGS (12)
  1. NEXIUM [Suspect]
     Indication: GASTROOESOPHAGEAL REFLUX DISEASE
     Dosage: EVERY DAY
     Route: 048
     Dates: start: 20010101
  2. LOSARTAN [Concomitant]
  3. BONIVA [Concomitant]
     Indication: OSTEOPOROSIS
  4. LEVAQUIN [Concomitant]
     Route: 048
     Dates: start: 20100413
  5. NEXIUM [Suspect]
     Route: 048
     Dates: start: 20060412
  6. CALCIUM CARBONATE [Concomitant]
     Indication: OSTEOPOROSIS
  7. PROPRANOLOL [Concomitant]
  8. NEXIUM [Suspect]
     Route: 048
     Dates: start: 20010101
  9. ROLAIDS [Concomitant]
  10. BISMUTH SUBSALICYLATE [Concomitant]
     Dosage: ON OCCASION
  11. LORTAB [Concomitant]
     Dates: start: 20110706
  12. PRILOSEC [Concomitant]
     Indication: GASTROOESOPHAGEAL REFLUX DISEASE

REACTIONS (7)
  - OSTEOPOROSIS [None]
  - LOWER LIMB FRACTURE [None]
  - BONE LOSS [None]
  - TIBIA FRACTURE [None]
  - ANXIETY [None]
  - HYPOVITAMINOSIS [None]
  - BONE PAIN [None]
